FAERS Safety Report 23805025 (Version 3)
Quarter: 2024Q4

REPORT INFORMATION
  Report Type: Spontaneous
  Country: JP (occurrence: JP)
  Receive Date: 20240502
  Receipt Date: 20241007
  Transmission Date: 20250115
  Serious: Yes (Other)
  Sender: AMGEN
  Company Number: None

PATIENT
  Age: 71 Year
  Sex: Male

DRUGS (21)
  1. IVABRADINE HYDROCHLORIDE [Suspect]
     Active Substance: IVABRADINE HYDROCHLORIDE
     Indication: Cardiac failure chronic
     Dosage: 5 MILLIGRAM, Q12H AFTER BREAKFAST AND DINNER
     Route: 048
     Dates: start: 20240410, end: 20240416
  2. ASPIRIN [Concomitant]
     Active Substance: ASPIRIN
     Indication: Product used for unknown indication
     Dosage: 100 MILLIGRAM, QD, EVERYDAY AFTER BREAKFAST
     Route: 048
  3. ROSUVASTATIN CALCIUM [Concomitant]
     Active Substance: ROSUVASTATIN CALCIUM
     Indication: Product used for unknown indication
     Dosage: 5 MG, EVERYDAY AFTER BREAKFAST
     Route: 048
  4. VONOPRAZAN FUMARATE [Concomitant]
     Active Substance: VONOPRAZAN FUMARATE
     Indication: Product used for unknown indication
     Dosage: 10 MG, EVERYDAY AFTER BREAKFAST
     Route: 048
  5. EDOXABAN TOSYLATE [Concomitant]
     Active Substance: EDOXABAN TOSYLATE
     Indication: Product used for unknown indication
     Dosage: 30 MG, EVERYDAY AFTER BREAKFAST
     Route: 048
  6. Tolvaptan od [Concomitant]
     Indication: Product used for unknown indication
     Dosage: 15 MG, EVERYDAY AFTER BREAKFAST
     Route: 048
  7. DAPAGLIFLOZIN [Concomitant]
     Active Substance: DAPAGLIFLOZIN
     Indication: Cardiac failure chronic
     Dosage: 10 MG, EVERYDAY AFTER BREAKFAST
     Route: 048
     Dates: start: 202303
  8. SPIRONOLACTONE [Concomitant]
     Active Substance: SPIRONOLACTONE
     Indication: Product used for unknown indication
     Dosage: 75 MG, EVERYDAY AFTER BREAKFAST
     Route: 048
  9. AZOSEMIDE [Concomitant]
     Active Substance: AZOSEMIDE
     Indication: Product used for unknown indication
     Dosage: 60 MG, EVERYDAY AFTER BREAKFAST
     Route: 048
  10. PIMOBENDAN [Concomitant]
     Active Substance: PIMOBENDAN
     Indication: Product used for unknown indication
     Dosage: 2.5 MG, Q12H AFTER BREAKFAST AND DINNER
     Route: 048
  11. AMITIZA [Concomitant]
     Active Substance: LUBIPROSTONE
     Indication: Product used for unknown indication
     Dosage: 24 MUG, Q12H AFTER BREAKFAST AND DINNER
     Route: 048
  12. AMIODARONE HYDROCHLORIDE [Concomitant]
     Active Substance: AMIODARONE HYDROCHLORIDE
     Indication: Product used for unknown indication
     Dosage: 50 MG, Q12H AFTER BREAKFAST AND DINNER
     Route: 048
  13. FERRIC CITRATE ANHYDROUS [Concomitant]
     Active Substance: FERRIC CITRATE ANHYDROUS
     Indication: Product used for unknown indication
     Dosage: 250 MG, Q12H AFTER BREAKFAST AND DINNER
     Route: 048
  14. ENALAPRIL MALEATE [Concomitant]
     Active Substance: ENALAPRIL MALEATE
     Indication: Product used for unknown indication
     Dosage: 3.75 MG, EVERYDAY AFTER BREAKFAST
     Route: 048
  15. IMEGLIMIN HYDROCHLORIDE [Concomitant]
     Active Substance: IMEGLIMIN HYDROCHLORIDE
     Indication: Product used for unknown indication
     Dosage: 1000 MG, Q12H AFTER BREAKFAST AND DINNER, END DATE: 16-APR-2024
     Route: 048
     Dates: end: 20240406
  16. IMEGLIMIN HYDROCHLORIDE [Concomitant]
     Active Substance: IMEGLIMIN HYDROCHLORIDE
     Dosage: 500 MG, Q12H
     Route: 048
     Dates: start: 20240417
  17. VILDAGLIPTIN [Concomitant]
     Active Substance: VILDAGLIPTIN
     Indication: Product used for unknown indication
     Dosage: 50 MG, Q12H AFTER BREAKFAST AND DINNER
     Route: 048
  18. DAYVIGO [Concomitant]
     Active Substance: LEMBOREXANT
     Indication: Product used for unknown indication
     Dosage: 5 MG, EVERYDAY BEFORE BEDTIME
     Route: 048
  19. MAGNESIUM OXIDE [Concomitant]
     Active Substance: MAGNESIUM OXIDE
     Indication: Product used for unknown indication
     Dosage: 330 MG, EVERYDAY AFTER BREAKFAST
     Route: 048
  20. VERQUVO [Concomitant]
     Active Substance: VERICIGUAT
     Indication: Product used for unknown indication
     Dosage: 3.75 MG, EVERYDAY AFTER BREAKFAST
     Route: 048
     Dates: end: 20240416
  21. VERQUVO [Concomitant]
     Active Substance: VERICIGUAT
     Dosage: 2.5 MG, EVERYDAY
     Route: 048
     Dates: start: 20240417

REACTIONS (1)
  - Renal impairment [Recovered/Resolved]

NARRATIVE: CASE EVENT DATE: 20240416
